FAERS Safety Report 8548499-3 (Version None)
Quarter: 2012Q3

REPORT INFORMATION
  Report Type: 
  Country: None (occurrence: None)
  Receive Date: 20120730
  Receipt Date: 20120702
  Transmission Date: 20120928
  Serious: No
  Sender: FDA-Public Use
  Company Number: US-009507513-2012SP035599

PATIENT

DRUGS (1)
  1. IMPLANON [Suspect]
     Indication: CONTRACEPTION
     Dates: start: 20120511, end: 20120611

REACTIONS (4)
  - HYPERHIDROSIS [None]
  - HOT FLUSH [None]
  - FEELING HOT [None]
  - POOR QUALITY SLEEP [None]
